FAERS Safety Report 17350320 (Version 2)
Quarter: 2020Q1

REPORT INFORMATION
  Report Type: Report from Study
  Country: None (occurrence: US)
  Receive Date: 20200130
  Receipt Date: 20200131
  Transmission Date: 20200409
  Serious: Yes (Other)
  Sender: FDA-Public Use
  Company Number: US-ABBVIE-19P-163-3213036-00

PATIENT
  Age: 73 Year
  Sex: Female

DRUGS (3)
  1. IMBRUVICA [Suspect]
     Active Substance: IBRUTINIB
     Route: 048
  2. IMBRUVICA [Suspect]
     Active Substance: IBRUTINIB
     Indication: LYMPHOCYTIC LEUKAEMIA
     Route: 048
  3. ACYCLOVIR. [Concomitant]
     Active Substance: ACYCLOVIR
     Indication: PRODUCT USED FOR UNKNOWN INDICATION

REACTIONS (4)
  - Contusion [Recovered/Resolved]
  - Contusion [Recovering/Resolving]
  - Stomatitis [Recovered/Resolved]
  - Hand fracture [Recovering/Resolving]

NARRATIVE: CASE EVENT DATE: 20191031
